FAERS Safety Report 9099875 (Version 2)
Quarter: 2013Q1

REPORT INFORMATION
  Report Type: Report from Study
  Country: NL (occurrence: NL)
  Receive Date: 20130213
  Receipt Date: 20130306
  Transmission Date: 20140127
  Serious: Yes (Hospitalization)
  Sender: FDA-Public Use
  Company Number: NL-ROCHE-1189547

PATIENT
  Age: 63 Year
  Sex: Female
  Weight: 85 kg

DRUGS (12)
  1. BEVACIZUMAB [Suspect]
     Indication: NON-SMALL CELL LUNG CANCER
     Route: 042
     Dates: start: 20130121
  2. BEVACIZUMAB [Suspect]
     Route: 042
     Dates: start: 20130214
  3. CARBOPLATIN [Suspect]
     Indication: NON-SMALL CELL LUNG CANCER
     Route: 042
     Dates: start: 20130121
  4. CARBOPLATIN [Suspect]
     Route: 042
     Dates: start: 20130214
  5. PACLITAXEL [Suspect]
     Indication: NON-SMALL CELL LUNG CANCER
     Route: 042
     Dates: start: 20130121
  6. PACLITAXEL [Suspect]
     Route: 042
     Dates: start: 20130214
  7. NITROGLYCERIN [Suspect]
     Indication: NON-SMALL CELL LUNG CANCER
     Dosage: ARM B DAY 2 TILL +3,
     Route: 062
     Dates: start: 20130120
  8. NITROGLYCERIN [Suspect]
     Dosage: ARM B DAY 2 TILL +3,
     Route: 062
     Dates: start: 20130213
  9. OXYCODONE [Concomitant]
     Route: 065
  10. SIMVASTATIN [Concomitant]
     Route: 065
  11. LATANOPROST EYE DROPS [Concomitant]
  12. MOVICOLON [Concomitant]

REACTIONS (2)
  - Febrile neutropenia [Recovered/Resolved]
  - Bone marrow failure [Unknown]
